FAERS Safety Report 7528212-9 (Version None)
Quarter: 2011Q2

REPORT INFORMATION
  Report Type: 
  Country: None (occurrence: None)
  Receive Date: 20110607
  Receipt Date: 20100510
  Transmission Date: 20111010
  Serious: No
  Sender: FDA-Public Use
  Company Number: US-ASTRAZENECA-2010SE21354

PATIENT
  Age: 68 Year
  Sex: Male
  Weight: 93 kg

DRUGS (4)
  1. MAGNESIUM SULFATE [Concomitant]
     Indication: MAGNESIUM DEFICIENCY
  2. PRILOSEC [Suspect]
     Indication: GASTROOESOPHAGEAL REFLUX DISEASE
     Route: 048
     Dates: start: 20050101, end: 20100501
  3. BENAZEPRIL HYDROCHLORIDE [Concomitant]
     Indication: HYPERTENSION
  4. BENADRYL [Concomitant]
     Indication: SLEEP DISORDER

REACTIONS (2)
  - WEIGHT INCREASED [None]
  - TENDONITIS [None]
